FAERS Safety Report 12711888 (Version 1)
Quarter: 2016Q3

REPORT INFORMATION
  Report Type: Report from Study
  Country: BR (occurrence: BR)
  Receive Date: 20160902
  Receipt Date: 20160902
  Transmission Date: 20161109
  Serious: Yes (Other)
  Sender: FDA-Public Use
  Company Number: PHHY2016BR053904

PATIENT
  Age: 46 Year
  Sex: Female
  Weight: 57.96 kg

DRUGS (3)
  1. GILENYA [Suspect]
     Active Substance: FINGOLIMOD HYDROCHLORIDE
     Dosage: 0.5 MG, QOD
     Route: 048
  2. GILENYA [Suspect]
     Active Substance: FINGOLIMOD HYDROCHLORIDE
     Indication: MULTIPLE SCLEROSIS
     Dosage: 0.5 MG, QD
     Route: 048
  3. GILENYA [Suspect]
     Active Substance: FINGOLIMOD HYDROCHLORIDE
     Dosage: 0.5 MG, QW3 (MONDAY, WEDNESDAY, FRIDAY)
     Route: 048
     Dates: start: 201505

REACTIONS (10)
  - Immunodeficiency [Recovered/Resolved]
  - Nasal mucosal erosion [Recovered/Resolved]
  - Fatigue [Not Recovered/Not Resolved]
  - Ear pain [Recovered/Resolved]
  - Prescribed underdose [Unknown]
  - Aphthous ulcer [Recovered/Resolved]
  - Injury [Recovered/Resolved]
  - Nasopharyngitis [Recovering/Resolving]
  - Visual acuity reduced [Not Recovered/Not Resolved]
  - Concomitant disease aggravated [Not Recovered/Not Resolved]

NARRATIVE: CASE EVENT DATE: 201503
